FAERS Safety Report 7883945-X (Version None)
Quarter: 2011Q4

REPORT INFORMATION
  Report Type: 
  Country: None (occurrence: None)
  Receive Date: 20111102
  Receipt Date: 20111028
  Transmission Date: 20120403
  Serious: Yes (Other)
  Sender: FDA-Public Use
  Company Number: DE-JNJFOC-20111001536

PATIENT
  Sex: Male
  Weight: 69 kg

DRUGS (6)
  1. CLOZAPINE [Concomitant]
     Route: 048
  2. PALIPERIDONE [Suspect]
     Indication: SCHIZOPHRENIA, PARANOID TYPE
     Route: 030
     Dates: start: 20110720, end: 20110720
  3. RISPERIDONE [Suspect]
     Indication: PRODUCT USED FOR UNKNOWN INDICATION
     Route: 048
  4. RISPERDAL CONSTA [Concomitant]
     Route: 030
     Dates: end: 20110706
  5. RISPERIDONE [Suspect]
     Route: 048
     Dates: start: 20110804
  6. PIPAMPERONE [Suspect]
     Indication: PRODUCT USED FOR UNKNOWN INDICATION
     Route: 048

REACTIONS (6)
  - COLD SWEAT [None]
  - RESTLESSNESS [None]
  - HYPOTENSION [None]
  - TERMINAL INSOMNIA [None]
  - CARDIOVASCULAR DISORDER [None]
  - HEART RATE INCREASED [None]
